APPROVED DRUG PRODUCT: POTASSIUM CHLORIDE
Active Ingredient: POTASSIUM CHLORIDE
Strength: 20MEQ
Dosage Form/Route: TABLET, EXTENDED RELEASE;ORAL
Application: A215725 | Product #002 | TE Code: AB3
Applicant: RUBICON RESEARCH LTD
Approved: Jul 25, 2022 | RLD: No | RS: No | Type: RX